FAERS Safety Report 23762976 (Version 5)
Quarter: 2025Q1

REPORT INFORMATION
  Report Type: Spontaneous
  Country: US (occurrence: US)
  Receive Date: 20240419
  Receipt Date: 20250109
  Transmission Date: 20250409
  Serious: Yes (Hospitalization)
  Sender: SANOFI AVENTIS
  Company Number: US-SA-SAC20240416000063

PATIENT
  Age: 35 Year
  Sex: Female
  Weight: 80 kg

DRUGS (19)
  1. DUPIXENT [Suspect]
     Active Substance: DUPILUMAB
     Indication: Asthma
     Dosage: 300 MG, QOW
     Route: 058
  2. DUPIXENT [Suspect]
     Active Substance: DUPILUMAB
     Indication: Narcolepsy
  3. DUPIXENT [Suspect]
     Active Substance: DUPILUMAB
     Indication: Asthma
     Dosage: 300 MG, QOW
     Route: 058
  4. SPIRONOLACTONE [Concomitant]
     Active Substance: SPIRONOLACTONE
  5. WAKIX [Concomitant]
     Active Substance: PITOLISANT HYDROCHLORIDE
  6. MODAFINIL [Concomitant]
     Active Substance: MODAFINIL
  7. MAGNESIUM CARBONATE [Concomitant]
     Active Substance: MAGNESIUM CARBONATE
  8. DICLOFENAC POTASSIUM [Concomitant]
     Active Substance: DICLOFENAC POTASSIUM
  9. PROCHLORPERAZINE MALEATE [Concomitant]
     Active Substance: PROCHLORPERAZINE MALEATE
  10. AZELASTINE HYDROCHLORIDE [Concomitant]
     Active Substance: AZELASTINE HYDROCHLORIDE
  11. ALBUTEROL SULFATE [Concomitant]
     Active Substance: ALBUTEROL SULFATE
  12. MONTELUKAST SODIUM [Concomitant]
     Active Substance: MONTELUKAST SODIUM
  13. DICYCLOMINE HYDROCHLORIDE [Concomitant]
     Active Substance: DICYCLOMINE HYDROCHLORIDE
  14. BUTALBITAL, ACETAMINOPHEN, AND CAFFEINE [Concomitant]
     Active Substance: ACETAMINOPHEN\BUTALBITAL\CAFFEINE
  15. NURTEC ODT [Concomitant]
     Active Substance: RIMEGEPANT SULFATE
  16. ZYRTEC [Concomitant]
     Active Substance: CETIRIZINE HYDROCHLORIDE
  17. FLONASE ALLERGY RELIEF [Concomitant]
     Active Substance: FLUTICASONE PROPIONATE
  18. ALBUTEROL SULFATE [Concomitant]
     Active Substance: ALBUTEROL SULFATE
  19. TRELEGY ELLIPTA [Concomitant]
     Active Substance: FLUTICASONE FUROATE\UMECLIDINIUM BROMIDE\VILANTEROL TRIFENATATE

REACTIONS (10)
  - Illness [Recovering/Resolving]
  - Injection site urticaria [Unknown]
  - Influenza [Unknown]
  - Middle ear effusion [Unknown]
  - Nasopharyngitis [Unknown]
  - Sinusitis [Unknown]
  - Asthma [Unknown]
  - Product dose omission issue [Unknown]
  - Arthralgia [Unknown]
  - Product use in unapproved indication [Unknown]

NARRATIVE: CASE EVENT DATE: 20241227
